FAERS Safety Report 5416451-2 (Version None)
Quarter: 2007Q3

REPORT INFORMATION
  Report Type: 
  Country: None (occurrence: None)
  Receive Date: 20070816
  Receipt Date: 20070816
  Transmission Date: 20080115
  Serious: Yes (Other)
  Sender: FDA-Public Use
  Company Number: None

PATIENT
  Age: 63 Year
  Sex: Female
  Weight: 68.0396 kg

DRUGS (1)
  1. COLGATE [Suspect]
     Dates: start: 20070501, end: 20070605

REACTIONS (3)
  - GLOSSODYNIA [None]
  - SWOLLEN TONGUE [None]
  - TONGUE DISORDER [None]
